FAERS Safety Report 5570838-6 (Version None)
Quarter: 2007Q4

REPORT INFORMATION
  Report Type: 
  Country: None (occurrence: None)
  Receive Date: 20071221
  Receipt Date: 20071210
  Transmission Date: 20080405
  Serious: Yes (Other)
  Sender: FDA-Public Use
  Company Number: US-ROCHE-535910

PATIENT
  Sex: Male

DRUGS (3)
  1. PEGASYS [Suspect]
     Indication: HEPATITIS C VIRUS
     Route: 065
  2. PEGASYS [Suspect]
     Dosage: DOSE: HALF DOSE
     Route: 065
  3. RIBAVIRIN [Suspect]
     Indication: HEPATITIS C VIRUS
     Route: 065

REACTIONS (2)
  - HEPATIC FIBROSIS [None]
  - NO THERAPEUTIC RESPONSE [None]
